FAERS Safety Report 15296650 (Version 1)
Quarter: 2018Q3

REPORT INFORMATION
  Report Type: Spontaneous
  Country: CN (occurrence: CN)
  Receive Date: 20180820
  Receipt Date: 20180820
  Transmission Date: 20181010
  Serious: Yes (Other)
  Sender: FDA-Public Use
  Company Number: CN-BAYER-2018-153781

PATIENT

DRUGS (2)
  1. AVELOX [Suspect]
     Active Substance: MOXIFLOXACIN HYDROCHLORIDE
     Indication: CENTRAL NERVOUS SYSTEM INFECTION
     Dosage: UNK
     Route: 048
     Dates: start: 2018
  2. BACTRIM [Concomitant]
     Active Substance: SULFAMETHOXAZOLE\TRIMETHOPRIM
     Indication: CENTRAL NERVOUS SYSTEM INFECTION
     Dosage: UNK
     Route: 048
     Dates: start: 2018

REACTIONS (3)
  - Off label use [None]
  - Product use in unapproved indication [None]
  - Bone marrow failure [None]

NARRATIVE: CASE EVENT DATE: 2018
